FAERS Safety Report 6321587-8 (Version None)
Quarter: 2009Q3

REPORT INFORMATION
  Report Type: 
  Country: None (occurrence: None)
  Receive Date: 20090824
  Receipt Date: 20090821
  Transmission Date: 20100115
  Serious: Yes (Life-Threatening, Hospitalization)
  Sender: FDA-Public Use
  Company Number: FR-JNJFOC-20090805067

PATIENT
  Age: 51 Year
  Sex: Male

DRUGS (3)
  1. REMICADE [Suspect]
     Route: 042
  2. REMICADE [Suspect]
     Indication: DRUG USE FOR UNKNOWN INDICATION
     Route: 042
  3. VERAPAMIL [Concomitant]

REACTIONS (4)
  - ACUTE RESPIRATORY FAILURE [None]
  - LEGIONELLA INFECTION [None]
  - LUNG DISORDER [None]
  - RENAL FAILURE [None]
